FAERS Safety Report 16025383 (Version 2)
Quarter: 2019Q1

REPORT INFORMATION
  Report Type: Spontaneous
  Country: US (occurrence: US)
  Receive Date: 20190301
  Receipt Date: 20190308
  Transmission Date: 20190418
  Serious: Yes (Other)
  Sender: FDA-Public Use
  Company Number: US-ASTRAZENECA-2018SF25691

PATIENT
  Sex: Female
  Weight: 112.9 kg

DRUGS (33)
  1. SINGULAIR [Concomitant]
     Active Substance: MONTELUKAST SODIUM
  2. VENOFER [Concomitant]
     Active Substance: IRON SUCROSE
  3. RENAGEL [Concomitant]
     Active Substance: SEVELAMER HYDROCHLORIDE
  4. SENSIPAR [Concomitant]
     Active Substance: CINACALCET HYDROCHLORIDE
  5. METOPROLOL TARTRATE. [Concomitant]
     Active Substance: METOPROLOL TARTRATE
  6. MONTELUKAST [Concomitant]
     Active Substance: MONTELUKAST SODIUM
  7. GABAPENTIN. [Concomitant]
     Active Substance: GABAPENTIN
  8. FOSRENAL [Concomitant]
  9. EPOGEN [Concomitant]
     Active Substance: ERYTHROPOIETIN
  10. AMLODIPINE [Concomitant]
     Active Substance: AMLODIPINE BESYLATE
  11. AZITHROMYCIN ANHYDROUS. [Concomitant]
     Active Substance: AZITHROMYCIN ANHYDROUS
  12. NEXIUM [Suspect]
     Active Substance: ESOMEPRAZOLE MAGNESIUM
     Route: 048
     Dates: start: 200501, end: 20160706
  13. NEXIUM [Suspect]
     Active Substance: ESOMEPRAZOLE MAGNESIUM
     Route: 048
  14. NITROSTAT [Concomitant]
     Active Substance: NITROGLYCERIN
  15. XANAX [Concomitant]
     Active Substance: ALPRAZOLAM
  16. VALSARTAN. [Concomitant]
     Active Substance: VALSARTAN
  17. CLOPIDOGREL [Concomitant]
     Active Substance: CLOPIDOGREL BISULFATE
  18. EFFEXOR [Concomitant]
     Active Substance: VENLAFAXINE HYDROCHLORIDE
  19. ZEMPLAR [Concomitant]
     Active Substance: PARICALCITOL
  20. COREG [Concomitant]
     Active Substance: CARVEDILOL
  21. DILTIAZEM. [Concomitant]
     Active Substance: DILTIAZEM
  22. FUROSEMIDE. [Concomitant]
     Active Substance: FUROSEMIDE
  23. RENVELA [Concomitant]
     Active Substance: SEVELAMER CARBONATE
  24. ATENOLOL. [Concomitant]
     Active Substance: ATENOLOL
  25. DIGOXIN. [Concomitant]
     Active Substance: DIGOXIN
  26. FENTANYL. [Concomitant]
     Active Substance: FENTANYL
  27. CLOPIDOGREL [Concomitant]
     Active Substance: CLOPIDOGREL BISULFATE
  28. PLAVIX [Concomitant]
     Active Substance: CLOPIDOGREL BISULFATE
  29. OMEPRAZOLE. [Concomitant]
     Active Substance: OMEPRAZOLE
  30. DIOVAN [Concomitant]
     Active Substance: VALSARTAN
  31. LEVOFLOXACIN. [Concomitant]
     Active Substance: LEVOFLOXACIN
  32. PROMETHAZINE [Concomitant]
     Active Substance: PROMETHAZINE\PROMETHAZINE HYDROCHLORIDE
  33. ASPIRIN. [Concomitant]
     Active Substance: ASPIRIN

REACTIONS (7)
  - Acute kidney injury [Unknown]
  - Renal failure [Unknown]
  - Nephrogenic anaemia [Unknown]
  - End stage renal disease [Unknown]
  - Renal injury [Unknown]
  - Chronic kidney disease [Unknown]
  - Hyperparathyroidism secondary [Unknown]
